FAERS Safety Report 10587338 (Version 3)
Quarter: 2014Q4

REPORT INFORMATION
  Report Type: Spontaneous
  Country: JP (occurrence: JP)
  Receive Date: 20141117
  Receipt Date: 20141229
  Transmission Date: 20150529
  Serious: Yes (Hospitalization)
  Sender: FDA-Public Use
  Company Number: PHHY2014JP148303

PATIENT
  Sex: Male

DRUGS (1)
  1. ULTIBRO BREEZHALER [Suspect]
     Active Substance: GLYCOPYRRONIUM\INDACATEROL
     Indication: DYSPNOEA
     Dosage: UNK
     Route: 055

REACTIONS (2)
  - Lung neoplasm malignant [Unknown]
  - Product use issue [Unknown]

NARRATIVE: CASE EVENT DATE: 201409
